FAERS Safety Report 11483502 (Version 1)
Quarter: 2015Q3

REPORT INFORMATION
  Report Type: Spontaneous
  Country: US (occurrence: US)
  Receive Date: 20150903
  Receipt Date: 20150903
  Transmission Date: 20151125
  Serious: Yes (Other)
  Sender: FDA-Public Use
  Company Number: US-ELI_LILLY_AND_COMPANY-US201207001627

PATIENT
  Age: 51 Year
  Sex: Female

DRUGS (7)
  1. CYMBALTA [Suspect]
     Active Substance: DULOXETINE HYDROCHLORIDE
     Indication: FIBROMYALGIA
     Dosage: 30 MG, QD
     Route: 065
  2. CYMBALTA [Suspect]
     Active Substance: DULOXETINE HYDROCHLORIDE
     Dosage: 30 MG, QD
     Route: 065
     Dates: end: 20120624
  3. CYMBALTA [Suspect]
     Active Substance: DULOXETINE HYDROCHLORIDE
     Dosage: 90 MG, QD
     Route: 065
  4. LAMOTRIGINE. [Concomitant]
     Active Substance: LAMOTRIGINE
  5. TOPAMAX [Concomitant]
     Active Substance: TOPIRAMATE
  6. CYMBALTA [Suspect]
     Active Substance: DULOXETINE HYDROCHLORIDE
     Dosage: 60 MG, QD
     Route: 065
  7. ATIVAN [Concomitant]
     Active Substance: LORAZEPAM

REACTIONS (15)
  - Mental impairment [Unknown]
  - Somnolence [Unknown]
  - Middle insomnia [Unknown]
  - Food craving [Unknown]
  - Dizziness [Unknown]
  - Seizure [Unknown]
  - Apathy [Unknown]
  - Weight increased [Unknown]
  - Eating disorder [Unknown]
  - Screaming [Unknown]
  - Nausea [Unknown]
  - Vertigo [Unknown]
  - Sleep terror [Unknown]
  - Drug withdrawal syndrome [Unknown]
  - Major depression [Unknown]
